FAERS Safety Report 13581811 (Version 1)
Quarter: 2017Q2

REPORT INFORMATION
  Report Type: Spontaneous
  Country: GB (occurrence: GB)
  Receive Date: 20170525
  Receipt Date: 20170525
  Transmission Date: 20170830
  Serious: Yes (Hospitalization)
  Sender: FDA-Public Use
  Company Number: GB-BIOGEN-2017BI00405044

PATIENT
  Sex: Female

DRUGS (1)
  1. TECFIDERA [Suspect]
     Active Substance: DIMETHYL FUMARATE
     Indication: MULTIPLE SCLEROSIS
     Dosage: MAINTENANCE DOSE
     Dates: start: 20160311, end: 201704

REACTIONS (7)
  - Palpitations [Unknown]
  - General symptom [Unknown]
  - Dyspnoea [Unknown]
  - Pyrexia [Unknown]
  - Loss of consciousness [Unknown]
  - Pulmonary arteriovenous fistula [Unknown]
  - Alopecia [Unknown]
